FAERS Safety Report 19823642 (Version 2)
Quarter: 2021Q4

REPORT INFORMATION
  Report Type: Report from Study
  Country: JP (occurrence: JP)
  Receive Date: 20210913
  Receipt Date: 20211007
  Transmission Date: 20220303
  Serious: Yes (Other)
  Sender: FDA-Public Use
  Company Number: JP-UCBSA-2021041294

PATIENT
  Age: 81 Year
  Sex: Male

DRUGS (4)
  1. CIMZIA [Suspect]
     Active Substance: CERTOLIZUMAB PEGOL
     Indication: Psoriasis
     Dosage: 400 MILLIGRAM, EV 2 WEEKS(QOW)
     Route: 058
     Dates: start: 20210618, end: 20210716
  2. DAPSONE [Concomitant]
     Active Substance: DAPSONE
     Indication: Prophylaxis
     Route: 048
     Dates: start: 20170712
  3. MINOCYCLINE HYDROCHLORIDE [Concomitant]
     Active Substance: MINOCYCLINE HYDROCHLORIDE
     Indication: Prophylaxis
     Route: 048
     Dates: start: 20170712
  4. EPINASTINE HYDROCHLORIDE [Concomitant]
     Active Substance: EPINASTINE HYDROCHLORIDE
     Indication: Product used for unknown indication
     Dosage: UNK, ONCE DAILY (QD)

REACTIONS (2)
  - Paradoxical drug reaction [Recovering/Resolving]
  - Therapeutic product ineffective [Unknown]

NARRATIVE: CASE EVENT DATE: 20210101
